FAERS Safety Report 13101827 (Version 1)
Quarter: 2017Q1

REPORT INFORMATION
  Report Type: Spontaneous
  Country: IT (occurrence: IT)
  Receive Date: 20170110
  Receipt Date: 20170110
  Transmission Date: 20170428
  Serious: Yes (Death, Other)
  Sender: FDA-Public Use
  Company Number: IT-PFIZER INC-2017003154

PATIENT
  Age: 64 Year
  Sex: Female

DRUGS (4)
  1. METHOTREXATE. [Suspect]
     Active Substance: METHOTREXATE
     Indication: CENTRAL NERVOUS SYSTEM LYMPHOMA
     Dosage: UNK (0.5 G/M2 OF MTX WERE ADMINISTERED IN 15 MINUTES)
  2. CYTARABINE. [Suspect]
     Active Substance: CYTARABINE
     Indication: CENTRAL NERVOUS SYSTEM LYMPHOMA
     Dosage: 1 G/M2, 1-HOUR INFUSION, TWICE A DAY
     Route: 041
  3. THIOTEPA. [Suspect]
     Active Substance: THIOTEPA
     Indication: CENTRAL NERVOUS SYSTEM LYMPHOMA
     Dosage: 30 MG/M2, UNK (RECYCLING EVERY 3 WEEKS)
  4. METHOTREXATE. [Suspect]
     Active Substance: METHOTREXATE
     Dosage: UNK (3-HOUR INFUSION OF 3 G/M2)
     Route: 041

REACTIONS (3)
  - Peritonitis [Unknown]
  - Septic shock [Fatal]
  - Large intestine perforation [Unknown]
